FAERS Safety Report 5086044-8 (Version None)
Quarter: 2006Q3

REPORT INFORMATION
  Report Type: 
  Country: None (occurrence: None)
  Receive Date: 20060817
  Receipt Date: 20060804
  Transmission Date: 20061208
  Serious: Yes (Other)
  Sender: FDA-Public Use
  Company Number: 2006097855

PATIENT
  Age: 60 Year
  Sex: Female

DRUGS (5)
  1. ARTHROTEC [Suspect]
     Indication: DRUG USE FOR UNKNOWN INDICATION
     Dates: start: 20050101
  2. CLOMIPRAMINE HCL [Concomitant]
  3. DIAZEPAM [Concomitant]
  4. NEXIUM [Concomitant]
  5. OXYCODONE HCL [Concomitant]

REACTIONS (4)
  - NAUSEA [None]
  - OROPHARYNGEAL SPASM [None]
  - PHARYNGOLARYNGEAL PAIN [None]
  - THROAT IRRITATION [None]
